FAERS Safety Report 5123204-1 (Version None)
Quarter: 2006Q4

REPORT INFORMATION
  Report Type: 
  Country: None (occurrence: None)
  Receive Date: 20061005
  Receipt Date: 20060922
  Transmission Date: 20070319
  Serious: Yes (Hospitalization)
  Sender: FDA-Public Use
  Company Number: 062-20785-06091051

PATIENT
  Age: 67 Year

DRUGS (1)
  1. THALOMID [Suspect]
     Indication: BLADDER CANCER
     Dosage: 100 MG, DAILY, ORAL
     Route: 048

REACTIONS (4)
  - ATRIOVENTRICULAR BLOCK THIRD DEGREE [None]
  - ELECTROCARDIOGRAM QRS COMPLEX PROLONGED [None]
  - HYPOTENSION [None]
  - SYNCOPE [None]
